FAERS Safety Report 14340461 (Version 1)
Quarter: 2018Q1

REPORT INFORMATION
  Report Type: Spontaneous
  Country: US (occurrence: US)
  Receive Date: 20180101
  Receipt Date: 20180101
  Transmission Date: 20180509
  Serious: Yes (Hospitalization, Other)
  Sender: FDA-Public Use
  Company Number: US-AUROBINDO-AUR-APL-2017-46634

PATIENT
  Age: 57 Year
  Sex: Female

DRUGS (9)
  1. METHADONE [Suspect]
     Active Substance: METHADONE HYDROCHLORIDE
     Dosage: 150 MG, UNK
     Route: 048
  2. METHADONE [Suspect]
     Active Substance: METHADONE HYDROCHLORIDE
     Indication: PAIN
     Dosage: 120 MG, UNK
     Route: 048
  3. GABAPENTIN. [Suspect]
     Active Substance: GABAPENTIN
     Indication: NEURALGIA
  4. FENTANYL. [Suspect]
     Active Substance: FENTANYL
     Indication: PAIN
     Dosage: EVERY 48 HOURS
     Route: 065
  5. SERTRALINE [Suspect]
     Active Substance: SERTRALINE HYDROCHLORIDE
     Indication: DEPRESSION
  6. METHADONE [Suspect]
     Active Substance: METHADONE HYDROCHLORIDE
     Dosage: 120 MG, DAILY
     Route: 048
  7. METHADONE [Suspect]
     Active Substance: METHADONE HYDROCHLORIDE
     Dosage: UNK UNK, 3 TIMES A DAY
     Route: 048
  8. PROMETHAZINE [Suspect]
     Active Substance: PROMETHAZINE\PROMETHAZINE HYDROCHLORIDE
  9. FENTANYL. [Suspect]
     Active Substance: FENTANYL
     Dosage: EVERY 2 DAYS
     Route: 065

REACTIONS (8)
  - Agitation [Unknown]
  - Nausea [Unknown]
  - Drug abuse [Unknown]
  - Hallucination, auditory [Unknown]
  - Abnormal behaviour [Unknown]
  - Vomiting [Unknown]
  - Hallucination, visual [Unknown]
  - Sedation complication [Unknown]
